FAERS Safety Report 17864654 (Version 3)
Quarter: 2020Q2

REPORT INFORMATION
  Report Type: Report from Study
  Country: JP (occurrence: JP)
  Receive Date: 20200605
  Receipt Date: 20200629
  Transmission Date: 20200714
  Serious: Yes (Hospitalization)
  Sender: FDA-Public Use
  Company Number: JP-EISAI MEDICAL RESEARCH-EC-2020-075471

PATIENT
  Age: 79 Year
  Sex: Male
  Weight: 51 kg

DRUGS (13)
  1. LEVOFLOXACIN HEMIHYDRATE [Concomitant]
     Active Substance: LEVOFLOXACIN
  2. LENVATINIB [Suspect]
     Active Substance: LENVATINIB
     Indication: BILE DUCT CANCER
     Route: 048
     Dates: start: 20200423, end: 20200520
  3. AMITIZA [Concomitant]
     Active Substance: LUBIPROSTONE
  4. NIVOLUMAB(GENETICAL RECOMBINATION) [Suspect]
     Active Substance: NIVOLUMAB
     Indication: BILE DUCT CANCER
     Dosage: 240 MG/BODY
     Route: 041
     Dates: start: 20200326, end: 20200507
  5. FERROMIA [Concomitant]
     Active Substance: SODIUM FERROUS CITRATE
  6. CINAL [Concomitant]
  7. LENVATINIB [Suspect]
     Active Substance: LENVATINIB
     Indication: BILE DUCT CANCER
     Dosage: DOSE UNKNOWN
     Route: 048
     Dates: start: 20200326, end: 20200422
  8. CALONAL [Concomitant]
     Active Substance: ACETAMINOPHEN
  9. MICARDIS [Concomitant]
     Active Substance: TELMISARTAN
  10. AMLODIPINE BESILATE [Concomitant]
     Active Substance: AMLODIPINE BESYLATE
  11. PARIET [Concomitant]
     Active Substance: RABEPRAZOLE SODIUM
     Route: 048
  12. MAGNESIUM OXIDE. [Concomitant]
     Active Substance: MAGNESIUM OXIDE
  13. TRAMAL [Concomitant]
     Active Substance: TRAMADOL

REACTIONS (2)
  - Malaise [Recovering/Resolving]
  - Cholangitis [Recovered/Resolved]

NARRATIVE: CASE EVENT DATE: 20200528
